FAERS Safety Report 15857208 (Version 1)
Quarter: 2019Q1

REPORT INFORMATION
  Report Type: Report from Study
  Country: DE (occurrence: DE)
  Receive Date: 20190123
  Receipt Date: 20190123
  Transmission Date: 20190417
  Serious: Yes (Death, Other)
  Sender: FDA-Public Use
  Company Number: DE-ACCORD-103044

PATIENT
  Age: 72 Year
  Sex: Female

DRUGS (2)
  1. BENDAMUSTINE/BENDAMUSTINE HYDROCHLORIDE [Suspect]
     Active Substance: BENDAMUSTINE HYDROCHLORIDE
     Indication: NON-HODGKIN^S LYMPHOMA
     Route: 042
     Dates: start: 20161228, end: 20170412
  2. RITUXIMAB. [Suspect]
     Active Substance: RITUXIMAB
     Indication: NON-HODGKIN^S LYMPHOMA
     Route: 042
     Dates: start: 20161222, end: 20170418

REACTIONS (9)
  - Acute kidney injury [Fatal]
  - Pneumonia cytomegaloviral [Fatal]
  - Disseminated intravascular coagulation [Fatal]
  - Acute respiratory distress syndrome [Fatal]
  - Septic shock [Fatal]
  - Pneumocystis jirovecii pneumonia [Fatal]
  - Multiple organ dysfunction syndrome [Fatal]
  - Lactic acidosis [Fatal]
  - Alveolitis [Unknown]

NARRATIVE: CASE EVENT DATE: 20170424
